FAERS Safety Report 16255019 (Version 1)
Quarter: 2019Q2

REPORT INFORMATION
  Report Type: Spontaneous
  Country: US (occurrence: US)
  Receive Date: 20190326
  Receipt Date: 20190326
  Transmission Date: 20190711
  Serious: No
  Sender: FDA-Public Use
  Company Number: None

PATIENT
  Age: 84 Year
  Sex: Female

DRUGS (2)
  1. TYMLOS [Suspect]
     Active Substance: ABALOPARATIDE
     Indication: PATHOLOGICAL FRACTURE
     Dosage: ?          OTHER STRENGTH:3120 MCG/1.56ML;?
     Route: 058
     Dates: start: 201809
  2. TYMLOS [Suspect]
     Active Substance: ABALOPARATIDE
     Indication: SENILE OSTEOPOROSIS
     Dosage: ?          OTHER STRENGTH:3120 MCG/1.56ML;?
     Route: 058
     Dates: start: 201809

REACTIONS (5)
  - Hypersensitivity [None]
  - Fall [None]
  - Chest pain [None]
  - Headache [None]
  - Limb injury [None]
